FAERS Safety Report 23172591 (Version 1)
Quarter: 2023Q4

REPORT INFORMATION
  Report Type: Report from Study
  Country: US (occurrence: None)
  Receive Date: 20231110
  Receipt Date: 20231110
  Transmission Date: 20240109
  Serious: Yes (Hospitalization)
  Sender: FDA-Public Use
  Company Number: 2023A251315

PATIENT
  Sex: Male

DRUGS (1)
  1. TAGRISSO [Suspect]
     Active Substance: OSIMERTINIB
     Indication: Lung neoplasm malignant
     Route: 048
     Dates: start: 20220311

REACTIONS (4)
  - Renal disorder [Recovering/Resolving]
  - Kidney infection [Recovering/Resolving]
  - Blood creatine abnormal [Unknown]
  - Vomiting [Unknown]
